FAERS Safety Report 5808672-1 (Version None)
Quarter: 2008Q3

REPORT INFORMATION
  Report Type: 
  Country: None (occurrence: None)
  Receive Date: 20080714
  Receipt Date: 20080204
  Transmission Date: 20090109
  Serious: No
  Sender: FDA-Public Use
  Company Number: US-BAYER-200813317NA

PATIENT
  Age: 36 Year
  Sex: Female
  Weight: 61 kg

DRUGS (2)
  1. MIRENA [Suspect]
     Indication: MENORRHAGIA
     Route: 015
     Dates: start: 20070501
  2. PROZAC [Concomitant]
     Indication: ANXIETY
     Route: 048
     Dates: start: 20071201

REACTIONS (9)
  - ABDOMINAL DISTENSION [None]
  - DIARRHOEA [None]
  - ERYTHEMA [None]
  - FLATULENCE [None]
  - HOT FLUSH [None]
  - MENORRHAGIA [None]
  - MENSTRUATION IRREGULAR [None]
  - MOOD SWINGS [None]
  - POLYMENORRHOEA [None]
